FAERS Safety Report 9797869 (Version 1)
Quarter: 2014Q1

REPORT INFORMATION
  Report Type: Spontaneous
  Country: MY (occurrence: MY)
  Receive Date: 20140106
  Receipt Date: 20140106
  Transmission Date: 20141002
  Serious: Yes (Death)
  Sender: FDA-Public Use
  Company Number: MY-BAYER-2013-158247

PATIENT
  Age: 72 Year
  Sex: Female

DRUGS (6)
  1. AVELOX [Suspect]
     Dosage: 400 MG, DAILY
     Route: 048
  2. APO-WARFARIN [Suspect]
     Indication: ATRIAL FIBRILLATION
     Dosage: 3 MG, DAILY
     Route: 048
  3. WARFARIN [Concomitant]
  4. DONEPEZIL [Concomitant]
  5. ESOMEPRAZOLE [Concomitant]
  6. ESCITALOPRAM [Concomitant]

REACTIONS (4)
  - Renal failure acute [Fatal]
  - Prothrombin time prolonged [Fatal]
  - Hepatic enzyme increased [Fatal]
  - International normalised ratio increased [Fatal]
